FAERS Safety Report 14482509 (Version 2)
Quarter: 2018Q2

REPORT INFORMATION
  Report Type: Report from Study
  Country: None (occurrence: US)
  Receive Date: 20180202
  Receipt Date: 20180511
  Transmission Date: 20180711
  Serious: Yes (Death, Hospitalization)
  Sender: FDA-Public Use
  Company Number: GB-ABBVIE-18K-167-2245719-00

PATIENT
  Age: 75 Year
  Sex: Male

DRUGS (2)
  1. METHOTREXATE. [Concomitant]
     Active Substance: METHOTREXATE
     Indication: RHEUMATOID ARTHRITIS
  2. HUMIRA [Suspect]
     Active Substance: ADALIMUMAB
     Indication: RHEUMATOID ARTHRITIS
     Route: 058
     Dates: start: 20040415

REACTIONS (13)
  - Oedema [Fatal]
  - Diarrhoea [Fatal]
  - Stomatitis [Fatal]
  - Pancytopenia [Fatal]
  - Neutropenic sepsis [Fatal]
  - Respiratory failure [Fatal]
  - Rash pruritic [Fatal]
  - Dehydration [Fatal]
  - Pulmonary sepsis [Fatal]
  - Allergic oedema [Fatal]
  - Pneumocystis jirovecii pneumonia [Fatal]
  - Rash pustular [Fatal]
  - Atrial fibrillation [Fatal]

NARRATIVE: CASE EVENT DATE: 20170719
